FAERS Safety Report 14786010 (Version 1)
Quarter: 2018Q2

REPORT INFORMATION
  Report Type: Spontaneous
  Country: TR (occurrence: TR)
  Receive Date: 20180420
  Receipt Date: 20180420
  Transmission Date: 20180711
  Serious: Yes (Other)
  Sender: FDA-Public Use
  Company Number: TR-MYLANLABS-2018M1024564

PATIENT

DRUGS (2)
  1. GLIBENCLAMIDE [Suspect]
     Active Substance: GLYBURIDE
     Indication: NEONATAL DIABETES MELLITUS
     Dosage: INITIAL DOSE: 0.1 MG/KG/DAY LATER INCREASED TO 1 MG/KG/DAY
     Route: 065
  2. GLIBENCLAMIDE [Suspect]
     Active Substance: GLYBURIDE
     Dosage: 1 MG/KG/DAY
     Route: 065

REACTIONS (1)
  - Insulin resistance [Recovered/Resolved]
